FAERS Safety Report 18524796 (Version 1)
Quarter: 2020Q4

REPORT INFORMATION
  Report Type: Spontaneous
  Country: NL (occurrence: NL)
  Receive Date: 20201119
  Receipt Date: 20201119
  Transmission Date: 20210114
  Serious: Yes (Other)
  Sender: FDA-Public Use
  Company Number: NL-ALSI-202000470

PATIENT
  Age: 16 Year
  Sex: Female

DRUGS (2)
  1. NITROUS OXIDE. [Suspect]
     Active Substance: NITROUS OXIDE
     Indication: PRODUCT USED FOR UNKNOWN INDICATION
     Route: 065
  2. USTEKINUMAB [Suspect]
     Active Substance: USTEKINUMAB
     Route: 058

REACTIONS (5)
  - Gait disturbance [Unknown]
  - Wound [Unknown]
  - Urinary incontinence [Unknown]
  - Vitamin B12 deficiency [Unknown]
  - Myelopathy [Unknown]
